FAERS Safety Report 10813764 (Version 1)
Quarter: 2015Q1

REPORT INFORMATION
  Report Type: Spontaneous
  Country: FR (occurrence: FR)
  Receive Date: 20150218
  Receipt Date: 20150218
  Transmission Date: 20150721
  Serious: Yes (Life-Threatening)
  Sender: FDA-Public Use
  Company Number: FR-AMGEN-FRASP2015014385

PATIENT
  Age: 54 Year
  Sex: Male

DRUGS (5)
  1. TETRALYSAL /00001701/ [Suspect]
     Active Substance: LYMECYCLINE
     Indication: RASH
     Dosage: 2 DF (1 DF, 2 IN 1 DAY(S))
     Route: 048
     Dates: start: 201410, end: 201410
  2. IRINOTECAN [Suspect]
     Active Substance: IRINOTECAN
     Indication: COLON CANCER METASTATIC
     Dosage: UNK
     Route: 042
     Dates: start: 201404, end: 20141020
  3. AERIUS [Concomitant]
     Active Substance: DESLORATADINE
     Indication: RASH
     Dosage: 1 DF, 1 IN 1 DAY(S)
     Route: 048
  4. TOMUDEX /01320702/ [Suspect]
     Active Substance: RALTITREXED
     Indication: COLON CANCER METASTATIC
     Dosage: 2 MG, UNK
     Route: 042
     Dates: start: 201410, end: 20141020
  5. VECTIBIX [Suspect]
     Active Substance: PANITUMUMAB
     Indication: COLON CANCER METASTATIC
     Dosage: UNK
     Route: 042
     Dates: start: 20140922, end: 20141020

REACTIONS (4)
  - Rash [Recovered/Resolved]
  - Hypovolaemic shock [Recovered/Resolved]
  - Renal failure [Recovered/Resolved]
  - Colitis [Recovered/Resolved]
